FAERS Safety Report 10600872 (Version 1)
Quarter: 2014Q4

REPORT INFORMATION
  Report Type: Spontaneous
  Country: US (occurrence: None)
  Receive Date: 20141121
  Receipt Date: 20141121
  Transmission Date: 20150529
  Serious: Yes (Other)
  Sender: FDA-Public Use
  Company Number: None

PATIENT
  Age: 66 Year
  Sex: Male
  Weight: 158.76 kg

DRUGS (1)
  1. HYDROCODONE ACETAMINOPHEN [Suspect]
     Active Substance: ACETAMINOPHEN\HYDROCODONE BITARTRATE
     Indication: PAIN
     Dosage: 325 MG/10 MG Q4 ORAL
     Route: 048
     Dates: start: 20120723

REACTIONS (3)
  - Drug ineffective [None]
  - Pain [None]
  - Product quality issue [None]

NARRATIVE: CASE EVENT DATE: 20141110
